FAERS Safety Report 9813887 (Version 2)
Quarter: 2014Q1

REPORT INFORMATION
  Report Type: Spontaneous
  Country: US (occurrence: US)
  Receive Date: 20140113
  Receipt Date: 20140128
  Transmission Date: 20141002
  Serious: Yes (Other)
  Sender: FDA-Public Use
  Company Number: US-JNJFOC-20140105063

PATIENT
  Age: 72 Year
  Sex: Female
  Weight: 65.77 kg

DRUGS (4)
  1. XARELTO [Suspect]
     Indication: THROMBOSIS
     Route: 048
     Dates: start: 20131113, end: 201312
  2. STELARA [Suspect]
     Indication: CROHN^S DISEASE
     Route: 058
     Dates: start: 201307
  3. COUMADIN [Suspect]
     Indication: THROMBOSIS
     Route: 065
     Dates: start: 201304, end: 20131113
  4. HYDROCORTISONE [Suspect]
     Indication: RASH
     Route: 065
     Dates: start: 201312

REACTIONS (6)
  - Lip exfoliation [Not Recovered/Not Resolved]
  - Rash macular [Not Recovered/Not Resolved]
  - Lip blister [Not Recovered/Not Resolved]
  - Lip swelling [Not Recovered/Not Resolved]
  - Rash pruritic [Not Recovered/Not Resolved]
  - Pain [Not Recovered/Not Resolved]
